FAERS Safety Report 4501371-8 (Version None)
Quarter: 2004Q4

REPORT INFORMATION
  Report Type: 
  Country: None (occurrence: None)
  Receive Date: 20041109
  Receipt Date: 20041102
  Transmission Date: 20050328
  Serious: Yes (Other)
  Sender: FDA-Public Use
  Company Number: S04-USA-07186-01

PATIENT
  Age: 49 Year
  Sex: Male

DRUGS (1)
  1. LEXAPRO [Suspect]
     Indication: DEPRESSION
     Dosage: 5 MG QD PO
     Route: 048
     Dates: start: 20040701, end: 20041005

REACTIONS (2)
  - DEAFNESS TRANSITORY [None]
  - TINNITUS [None]
